FAERS Safety Report 17670452 (Version 2)
Quarter: 2020Q3

REPORT INFORMATION
  Report Type: Spontaneous
  Country: US (occurrence: US)
  Receive Date: 20200415
  Receipt Date: 20200727
  Transmission Date: 20201102
  Serious: No
  Sender: FDA-Public Use
  Company Number: US-AMNEAL PHARMACEUTICALS-2020-AMRX-00999

PATIENT
  Age: 25 Year
  Sex: Female

DRUGS (2)
  1. ISOTRETINOIN. [Suspect]
     Active Substance: ISOTRETINOIN
     Indication: CHEILITIS
     Dosage: 30 MILLIGRAM, DAILY
     Route: 065
     Dates: start: 20200218, end: 20200310
  2. ISOTRETINOIN. [Suspect]
     Active Substance: ISOTRETINOIN
     Indication: ACNE
     Dosage: 30 MILLIGRAM, QOD
     Route: 065
     Dates: start: 20200310, end: 20200323

REACTIONS (8)
  - Contusion [Unknown]
  - Product use in unapproved indication [Unknown]
  - Eye inflammation [Unknown]
  - Photosensitivity reaction [Unknown]
  - Neck pain [Unknown]
  - Headache [Recovering/Resolving]
  - Vision blurred [Unknown]
  - Photophobia [Unknown]

NARRATIVE: CASE EVENT DATE: 2020
